FAERS Safety Report 7911042-3 (Version None)
Quarter: 2011Q4

REPORT INFORMATION
  Report Type: 
  Country: None (occurrence: None)
  Receive Date: 20111114
  Receipt Date: 20070810
  Transmission Date: 20120403
  Serious: No
  Sender: FDA-Public Use
  Company Number: 2007BI017266

PATIENT
  Age: 36 Year
  Sex: Female

DRUGS (3)
  1. TYSABRI [Suspect]
     Dates: end: 20101101
  2. TYSABRI [Suspect]
     Indication: MULTIPLE SCLEROSIS
     Route: 042
     Dates: start: 20061019
  3. TYSABRI [Suspect]
     Route: 042
     Dates: start: 20110927

REACTIONS (14)
  - HERPES ZOSTER [None]
  - MYOCARDIAL INFARCTION [None]
  - CATHETER PLACEMENT [None]
  - HYPOAESTHESIA [None]
  - PAIN [None]
  - HYPERSENSITIVITY [None]
  - TACHYCARDIA [None]
  - ANAESTHETIC COMPLICATION [None]
  - TREMOR [None]
  - POOR VENOUS ACCESS [None]
  - MULTIPLE SCLEROSIS [None]
  - DEVICE INVERSION [None]
  - DEVICE DIFFICULT TO USE [None]
  - HYPERTENSION [None]
